FAERS Safety Report 6686139-9 (Version None)
Quarter: 2010Q2

REPORT INFORMATION
  Report Type: 
  Country: None (occurrence: None)
  Receive Date: 20100419
  Receipt Date: 20100407
  Transmission Date: 20101027
  Serious: Yes (Other)
  Sender: FDA-Public Use
  Company Number: PHHY2010GB23266

PATIENT
  Age: 91 Year
  Sex: Male

DRUGS (4)
  1. ALISKIREN [Suspect]
     Indication: HYPERTENSION
     Dosage: 150 MG/DAY
     Dates: start: 20100211, end: 20100212
  2. RAMIPRIL [Concomitant]
  3. VISCOTEARS [Concomitant]
  4. WARFARIN SODIUM [Concomitant]

REACTIONS (1)
  - HAEMATEMESIS [None]
